FAERS Safety Report 10889446 (Version 1)
Quarter: 2015Q1

REPORT INFORMATION
  Report Type: Spontaneous
  Country: US (occurrence: US)
  Receive Date: 20150305
  Receipt Date: 20150305
  Transmission Date: 20150721
  Serious: Yes (Other)
  Sender: FDA-Public Use
  Company Number: ALCN2015US001494

PATIENT
  Age: 48 Year
  Sex: Male

DRUGS (4)
  1. ATROPINE SULFATE. [Suspect]
     Active Substance: ATROPINE SULFATE
     Indication: UVEITIS
  2. PREDNISOLONE ACETATE. [Suspect]
     Active Substance: PREDNISOLONE ACETATE
     Indication: HYPOPYON
     Dosage: UNK UNK, QH
     Route: 047
  3. PREDNISOLONE ACETATE. [Suspect]
     Active Substance: PREDNISOLONE ACETATE
     Indication: UVEITIS
  4. ATROPINE SULFATE. [Suspect]
     Active Substance: ATROPINE SULFATE
     Indication: HYPOPYON
     Dosage: 1 UNK, QID
     Route: 047

REACTIONS (6)
  - Mycosis fungoides [Unknown]
  - Hypopyon [Recovered/Resolved]
  - Erythema [Unknown]
  - Blood glucose increased [Unknown]
  - Drug ineffective [Recovered/Resolved]
  - Off label use [Unknown]
